FAERS Safety Report 6620882-2 (Version None)
Quarter: 2010Q1

REPORT INFORMATION
  Report Type: 
  Country: None (occurrence: None)
  Receive Date: 20100309
  Receipt Date: 20100302
  Transmission Date: 20100710
  Serious: Yes (Hospitalization, Other)
  Sender: FDA-Public Use
  Company Number: MT-ABBOTT-10P-103-0628017-00

PATIENT
  Age: 63 Year
  Sex: Female

DRUGS (2)
  1. KLARICID XL [Suspect]
     Indication: TOOTH INFECTION
     Route: 048
     Dates: start: 20091005, end: 20091008
  2. ZOCOR [Concomitant]
     Indication: DRUG USE FOR UNKNOWN INDICATION
     Route: 048

REACTIONS (9)
  - CHEST PAIN [None]
  - HYPOAESTHESIA [None]
  - NAUSEA [None]
  - OBSESSIVE THOUGHTS [None]
  - PARAESTHESIA [None]
  - PHOTOSENSITIVITY REACTION [None]
  - PRURITUS [None]
  - RASH [None]
  - RASH ERYTHEMATOUS [None]
